FAERS Safety Report 7741573-0 (Version None)
Quarter: 2011Q3

REPORT INFORMATION
  Report Type: 
  Country: None (occurrence: None)
  Receive Date: 20110909
  Receipt Date: 20110831
  Transmission Date: 20111222
  Serious: Yes (Hospitalization, Other)
  Sender: FDA-Public Use
  Company Number: CN-ASTRAZENECA-2011SE40683

PATIENT
  Age: 33 Year
  Sex: Female
  Weight: 45 kg

DRUGS (1)
  1. IRESSA [Suspect]
     Indication: LUNG NEOPLASM MALIGNANT
     Route: 048
     Dates: start: 20110301, end: 20110501

REACTIONS (5)
  - OBSTRUCTIVE AIRWAYS DISORDER [None]
  - CHEST DISCOMFORT [None]
  - TUMOUR COMPRESSION [None]
  - DYSPNOEA [None]
  - PERICARDIAL EFFUSION [None]
